FAERS Safety Report 5508155-2 (Version None)
Quarter: 2007Q4

REPORT INFORMATION
  Report Type: 
  Country: None (occurrence: None)
  Receive Date: 20071106
  Receipt Date: 20071026
  Transmission Date: 20080405
  Serious: Yes (Hospitalization)
  Sender: FDA-Public Use
  Company Number: US-PFIZER INC-2007086025

PATIENT
  Sex: Male
  Weight: 73 kg

DRUGS (3)
  1. SU-011,248 [Suspect]
     Indication: MALIGNANT MELANOMA
     Dosage: DAILY DOSE:50MG-FREQ:DAILY
     Route: 048
  2. TOPROL-XL [Concomitant]
     Indication: HYPERTENSION
     Route: 048
  3. OXYCODONE HCL [Concomitant]
     Indication: BACK PAIN
     Route: 048

REACTIONS (1)
  - URINARY TRACT INFECTION [None]
